FAERS Safety Report 16156685 (Version 2)
Quarter: 2019Q2

REPORT INFORMATION
  Report Type: Report from Study
  Country: US (occurrence: US)
  Receive Date: 20190404
  Receipt Date: 20190411
  Transmission Date: 20190711
  Serious: Yes (Hospitalization)
  Sender: FDA-Public Use
  Company Number: US-BIOGEN-2019BI00718020

PATIENT
  Sex: Female

DRUGS (1)
  1. AVONEX [Suspect]
     Active Substance: INTERFERON BETA-1A
     Indication: MULTIPLE SCLEROSIS
     Dosage: INJECT THE CONTENTS OF 1 PEN INTO THE MUSCLE ONCE A WEEK.
     Route: 030
     Dates: start: 1998

REACTIONS (4)
  - Cystitis [Unknown]
  - Muscular weakness [Unknown]
  - Dizziness postural [Unknown]
  - Fall [Recovered/Resolved]
